FAERS Safety Report 8591952-7 (Version None)
Quarter: 2012Q3

REPORT INFORMATION
  Report Type: 
  Country: None (occurrence: None)
  Receive Date: 20120803
  Receipt Date: 20120803
  Transmission Date: 20120928
  Serious: No
  Sender: FDA-Public Use
  Company Number: None

PATIENT
  Age: 77 Year
  Sex: Female

DRUGS (1)
  1. PROLIA [Suspect]
     Indication: OSTEOPOROSIS
     Dosage: 60MG X1 SQ
     Route: 058
     Dates: start: 20120801, end: 20120801

REACTIONS (3)
  - ERYTHEMA [None]
  - PRURITUS [None]
  - HEADACHE [None]
